FAERS Safety Report 10546111 (Version 2)
Quarter: 2015Q2

REPORT INFORMATION
  Report Type: Spontaneous
  Country: US (occurrence: None)
  Receive Date: 20141020
  Receipt Date: 20150420
  Transmission Date: 20150821
  Serious: Yes (Other)
  Sender: FDA-Public Use
  Company Number: AEGR000581

PATIENT
  Age: 53 Year
  Sex: Female
  Weight: 66.2 kg

DRUGS (8)
  1. ZETIA [Concomitant]
     Active Substance: EZETIMIBE
  2. LOSARTAN (LOSARTAN POTASSIUM) [Concomitant]
  3. JUXTAPID [Suspect]
     Active Substance: LOMITAPIDE MESYLATE
     Indication: TYPE IIA HYPERLIPIDAEMIA
     Route: 048
     Dates: start: 20140628, end: 20140824
  4. FENOFIBRATE. [Concomitant]
     Active Substance: FENOFIBRATE
  5. OMEGA 3 6 9 (OMEGA 9 FATTY ACIDS, OMEGA-3 FATTY ACIDS, OMEGA-6 FATTY ACIDS) [Concomitant]
  6. PLAVIX (CLOPIDOGREL BISULFATE) [Concomitant]
  7. VITAMIN E (TOCOPHERYL ACID SUCCINATE) [Concomitant]
  8. OMEGA (CONVALLARIA MAJALIS, CRATAEGUS LAEVIGATA, PROXYPHYLLINE) [Concomitant]

REACTIONS (2)
  - Weight decreased [None]
  - Chest pain [None]

NARRATIVE: CASE EVENT DATE: 2014
